FAERS Safety Report 6695826-8 (Version None)
Quarter: 2010Q2

REPORT INFORMATION
  Report Type: 
  Country: None (occurrence: None)
  Receive Date: 20100426
  Receipt Date: 20100413
  Transmission Date: 20101027
  Serious: No
  Sender: FDA-Public Use
  Company Number: JP-JNJFOC-20100404111

PATIENT
  Age: 74 Year
  Sex: Female

DRUGS (6)
  1. DUROTEP MT [Suspect]
     Indication: PAIN
     Route: 062
  2. LOXOPROFEN [Concomitant]
     Route: 065
  3. CEFDINIR [Concomitant]
     Route: 065
  4. ANTI-DIABETIC DRUGS [Concomitant]
     Route: 065
  5. ANTI HYPERTENSIVE MEDICATIONS [Concomitant]
     Route: 065
  6. UNKNOWN MEDICATION [Concomitant]
     Route: 065

REACTIONS (1)
  - DRUG PRESCRIBING ERROR [None]
